FAERS Safety Report 6515509-4 (Version None)
Quarter: 2009Q4

REPORT INFORMATION
  Report Type: 
  Country: None (occurrence: None)
  Receive Date: 20091223
  Receipt Date: 20091215
  Transmission Date: 20100525
  Serious: Yes (Other)
  Sender: FDA-Public Use
  Company Number: BR-ROCHE-675462

PATIENT
  Sex: Female
  Weight: 50 kg

DRUGS (3)
  1. ROACUTAN [Suspect]
     Indication: ACNE
     Dosage: STRENGTH: 10 MG
     Route: 048
     Dates: start: 20080730, end: 20090201
  2. ROACUTAN [Suspect]
     Dosage: STRENGTH: 20 MG
     Route: 048
     Dates: start: 20090301, end: 20090401
  3. ISOTRETINOIN [Concomitant]
     Indication: ACNE
     Route: 048
     Dates: start: 20090501, end: 20090520

REACTIONS (1)
  - ABORTION SPONTANEOUS [None]
